FAERS Safety Report 9379986 (Version 5)
Quarter: 2013Q4

REPORT INFORMATION
  Report Type: Spontaneous
  Country: DE (occurrence: DE)
  Receive Date: 20130702
  Receipt Date: 20131017
  Transmission Date: 20140711
  Serious: Yes (Hospitalization, Other)
  Sender: FDA-Public Use
  Company Number: DE-THROMBOGENICS NV-JET-2013-186

PATIENT
  Sex: 0

DRUGS (1)
  1. JETREA [Suspect]
     Indication: MACULAR HOLE
     Dosage: 2.5 MG/ML, ONE TIME DOSE
     Route: 031
     Dates: start: 20130614, end: 20130614

REACTIONS (19)
  - Blindness transient [Recovered/Resolved]
  - Retinal injury [Not Recovered/Not Resolved]
  - Macular hole [Recovered/Resolved]
  - Disease progression [Recovered/Resolved]
  - Anterior chamber inflammation [Unknown]
  - Retinoschisis [Unknown]
  - Retinoschisis [Unknown]
  - Malaise [Not Recovered/Not Resolved]
  - Miosis [Not Recovered/Not Resolved]
  - Photopsia [Recovered/Resolved]
  - Diplopia [Not Recovered/Not Resolved]
  - Colour blindness acquired [Not Recovered/Not Resolved]
  - Metamorphopsia [Not Recovered/Not Resolved]
  - Visual impairment [Unknown]
  - Pupillary reflex impaired [Unknown]
  - Glare [Unknown]
  - Retinal tear [Recovered/Resolved with Sequelae]
  - Visual acuity reduced transiently [Recovered/Resolved]
  - Retinal haemorrhage [Unknown]
